FAERS Safety Report 8530925-7 (Version None)
Quarter: 2012Q3

REPORT INFORMATION
  Report Type: 
  Country: None (occurrence: None)
  Receive Date: 20120723
  Receipt Date: 20120628
  Transmission Date: 20120928
  Serious: No
  Sender: FDA-Public Use
  Company Number: US-ROXANE LABORATORIES, INC.-2012-RO-01506RO

PATIENT

DRUGS (1)
  1. CODEINE SULFATE [Suspect]

REACTIONS (1)
  - DRUG HYPERSENSITIVITY [None]
